FAERS Safety Report 17151969 (Version 1)
Quarter: 2019Q4

REPORT INFORMATION
  Report Type: Spontaneous
  Country: CA (occurrence: CA)
  Receive Date: 20191213
  Receipt Date: 20191213
  Transmission Date: 20200122
  Serious: Yes (Death, Hospitalization)
  Sender: FDA-Public Use
  Company Number: CA-PFIZER INC-2019275878

PATIENT
  Age: 45 Year
  Sex: Female

DRUGS (15)
  1. LION^S MANE [Concomitant]
     Dosage: 10 MG, UNK
  2. PANTOLOC [Concomitant]
     Active Substance: PANTOPRAZOLE SODIUM
     Dosage: 40 MG, UNK
  3. REISHI [ASCORBIC ACID;GANODERMA LUCIDUM] [Concomitant]
     Dosage: UNK
  4. PREDNISONE. [Concomitant]
     Active Substance: PREDNISONE
     Dosage: 20 MG, UNK
  5. GANOCELIUM (GL) [Concomitant]
     Dosage: UNK
  6. KEPPRA [Concomitant]
     Active Substance: LEVETIRACETAM
     Dosage: UNK
  7. CORDYCEPS [Concomitant]
     Active Substance: HERBALS
     Dosage: 300 MG, UNK
  8. HYDROMORPHONE [Concomitant]
     Active Substance: HYDROMORPHONE
     Dosage: 9 MG, CYCLIC (Q 2 H)
  9. SENNA LAXATIVE AND DOCUSATE SODIUM [Concomitant]
     Dosage: 2 DF, 2X/DAY
  10. PEGLAX [Concomitant]
     Active Substance: POLYETHYLENE GLYCOL 4000
     Dosage: 17 G, 2X/DAY
  11. VIT D [Concomitant]
     Active Substance: VITAMIN D NOS
     Dosage: UNK (DROPS)
  12. XALKORI [Suspect]
     Active Substance: CRIZOTINIB
     Indication: NON-SMALL CELL LUNG CANCER
     Dosage: 250 MG, TWICE DAILY
     Dates: start: 20190701, end: 20191027
  13. ENOXAPARIN [Concomitant]
     Active Substance: ENOXAPARIN
     Dosage: UNK
  14. METOCLOPRAMIDE. [Concomitant]
     Active Substance: METOCLOPRAMIDE
     Dosage: 10 MG, UNK
  15. IMMUNOCAL [Concomitant]
     Dosage: UNK

REACTIONS (5)
  - Death [Fatal]
  - Dyspnoea [Unknown]
  - Alopecia [Unknown]
  - Cough [Not Recovered/Not Resolved]
  - Neoplasm progression [Not Recovered/Not Resolved]

NARRATIVE: CASE EVENT DATE: 2019
